FAERS Safety Report 11932279 (Version 1)
Quarter: 2016Q1

REPORT INFORMATION
  Report Type: Spontaneous
  Country: GB (occurrence: GB)
  Receive Date: 20160120
  Receipt Date: 20160120
  Transmission Date: 20160526
  Serious: Yes (Disabling)
  Sender: FDA-Public Use
  Company Number: GB-BAUSCH-BL-2016-000301

PATIENT
  Age: 63 Year
  Sex: Male
  Weight: 84.36 kg

DRUGS (1)
  1. DEXAMETHASONE. [Suspect]
     Active Substance: DEXAMETHASONE
     Indication: DECREASED APPETITE
     Route: 048
     Dates: start: 20141201, end: 20150115

REACTIONS (11)
  - Drug interaction [Unknown]
  - Amnesia [Recovered/Resolved with Sequelae]
  - Condition aggravated [Unknown]
  - Mania [Recovered/Resolved with Sequelae]
  - Fear [Recovered/Resolved with Sequelae]
  - Depression [Recovered/Resolved with Sequelae]
  - Insomnia [Recovered/Resolved]
  - Illogical thinking [Unknown]
  - Psychotic disorder [Recovered/Resolved with Sequelae]
  - Decreased appetite [Recovered/Resolved]
  - Paranoia [Recovered/Resolved with Sequelae]

NARRATIVE: CASE EVENT DATE: 20141208
